FAERS Safety Report 4962477-2 (Version None)
Quarter: 2006Q1

REPORT INFORMATION
  Report Type: 
  Country: None (occurrence: None)
  Receive Date: 20060201
  Receipt Date: 20051102
  Transmission Date: 20060701
  Serious: No
  Sender: FDA-Public Use
  Company Number: 2005PV004306

PATIENT
  Age: 73 Year
  Sex: Male
  Weight: 108.8633 kg

DRUGS (8)
  1. BYETTA [Suspect]
     Indication: DIABETES MELLITUS NON-INSULIN-DEPENDENT
     Dosage: 10 MCG BID SC ; 5 MCG SC
     Route: 058
     Dates: start: 20050901, end: 20051021
  2. BYETTA [Suspect]
     Indication: DIABETES MELLITUS NON-INSULIN-DEPENDENT
     Dosage: 10 MCG BID SC ; 5 MCG SC
     Route: 058
     Dates: start: 20051021
  3. GLIPIZIDE [Concomitant]
  4. ENALAPRIL MALEATE [Concomitant]
  5. NIFEDIPINE [Concomitant]
  6. PRAZOLE [Concomitant]
  7. TRIMATERENE [Concomitant]
  8. LIPITOR [Concomitant]

REACTIONS (2)
  - BLOOD GLUCOSE DECREASED [None]
  - BLOOD GLUCOSE INCREASED [None]
